FAERS Safety Report 6073949-4 (Version None)
Quarter: 2009Q1

REPORT INFORMATION
  Report Type: 
  Country: None (occurrence: None)
  Receive Date: 20090211
  Receipt Date: 20090202
  Transmission Date: 20090719
  Serious: Yes (Disabling, Other)
  Sender: FDA-Public Use
  Company Number: PHEH2008US08805

PATIENT
  Sex: Female
  Weight: 77.1 kg

DRUGS (5)
  1. FEMARA [Suspect]
     Indication: BREAST CANCER
     Dosage: 2.5 MG, QD
     Route: 048
     Dates: start: 20080716, end: 20081217
  2. SIMVASTATIN [Concomitant]
     Indication: BLOOD CHOLESTEROL
     Route: 048
  3. ENALAPRIL [Concomitant]
     Indication: BLOOD PRESSURE
     Dosage: 5 MG, QD
     Route: 048
  4. PERCOCET [Concomitant]
     Indication: PAIN
     Dosage: 5/325 MG PRN
     Route: 048
  5. METOPROLOL TARTRATE [Concomitant]
     Indication: BLOOD PRESSURE
     Dosage: 50 MG, QD
     Route: 048

REACTIONS (8)
  - ABDOMINAL DISCOMFORT [None]
  - COLONIC POLYP [None]
  - DIVERTICULUM [None]
  - GASTRIC POLYPS [None]
  - GASTRITIS [None]
  - HIATUS HERNIA [None]
  - NAUSEA [None]
  - PAIN [None]
